FAERS Safety Report 9614257 (Version 1)
Quarter: 2013Q4

REPORT INFORMATION
  Report Type: Spontaneous
  Country: US (occurrence: US)
  Receive Date: 20131011
  Receipt Date: 20131011
  Transmission Date: 20140711
  Serious: Yes (Other)
  Sender: FDA-Public Use
  Company Number: US-BRISTOL-MYERS SQUIBB COMPANY-19523984

PATIENT
  Age: 70 Year
  Sex: Male
  Weight: 106.57 kg

DRUGS (2)
  1. COUMADIN [Suspect]
     Indication: COAGULOPATHY
  2. TIKOSYN [Suspect]
     Indication: ATRIAL FIBRILLATION
     Dosage: STARTED PRIOR TO 2006
     Dates: end: 20130910

REACTIONS (2)
  - Atrial fibrillation [Unknown]
  - Dyspepsia [Recovered/Resolved]
